FAERS Safety Report 12639065 (Version 1)
Quarter: 2016Q3

REPORT INFORMATION
  Report Type: Spontaneous
  Country: US (occurrence: US)
  Receive Date: 20160809
  Receipt Date: 20160809
  Transmission Date: 20161109
  Serious: No
  Sender: FDA-Public Use
  Company Number: US-ASTRAZENECA-2006BM17311

PATIENT
  Age: 20017 Day
  Sex: Female
  Weight: 90.7 kg

DRUGS (2)
  1. TRULICITY [Concomitant]
     Active Substance: DULAGLUTIDE
  2. BYETTA [Suspect]
     Active Substance: EXENATIDE
     Indication: TYPE 2 DIABETES MELLITUS
     Route: 058
     Dates: start: 20061030

REACTIONS (3)
  - Nausea [Recovered/Resolved]
  - Vomiting [Unknown]
  - Retching [Recovered/Resolved]

NARRATIVE: CASE EVENT DATE: 20061030
